FAERS Safety Report 13936242 (Version 8)
Quarter: 2018Q1

REPORT INFORMATION
  Report Type: Report from Study
  Country: CA (occurrence: CA)
  Receive Date: 20170905
  Receipt Date: 20180209
  Transmission Date: 20180508
  Serious: Yes (Death, Hospitalization, Other)
  Sender: FDA-Public Use
  Company Number: CA-GLAXOSMITHKLINE-CA2017GSK126838

PATIENT
  Age: 86 Year
  Sex: Male

DRUGS (5)
  1. MEPOLIZUMAB [Suspect]
     Active Substance: MEPOLIZUMAB
     Dosage: 100 MG, Z
     Route: 042
     Dates: start: 20180108
  2. SALBUTAMOL [Suspect]
     Active Substance: ALBUTEROL
     Indication: PRODUCT USED FOR UNKNOWN INDICATION
     Dosage: UNK
  3. MEPOLIZUMAB [Suspect]
     Active Substance: MEPOLIZUMAB
     Dosage: 100 MG, Z
     Route: 042
  4. MEPOLIZUMAB [Suspect]
     Active Substance: MEPOLIZUMAB
     Indication: ASTHMA
     Dosage: 100 MG, Z, MONTHLY
     Route: 042
     Dates: start: 20170719
  5. MEPOLIZUMAB [Suspect]
     Active Substance: MEPOLIZUMAB
     Dosage: 100 MG, Z
     Route: 042

REACTIONS (16)
  - Pollakiuria [Unknown]
  - Nephrostomy tube removal [Unknown]
  - Chromaturia [Unknown]
  - Post procedural haemorrhage [Recovering/Resolving]
  - Post procedural infection [Unknown]
  - Bladder neoplasm [Unknown]
  - Pelvic mass [Unknown]
  - Renal impairment [Unknown]
  - Metastatic carcinoma of the bladder [Fatal]
  - Urinary tract stoma complication [Unknown]
  - Renal surgery [Unknown]
  - Sinus operation [Unknown]
  - Nephrostomy [Unknown]
  - Urosepsis [Unknown]
  - Pneumonia [Unknown]
  - Polyuria [Unknown]

NARRATIVE: CASE EVENT DATE: 20170803
